FAERS Safety Report 13178165 (Version 1)
Quarter: 2017Q1

REPORT INFORMATION
  Report Type: Spontaneous
  Country: CA (occurrence: CA)
  Receive Date: 20170202
  Receipt Date: 20170202
  Transmission Date: 20170428
  Serious: Yes (Other)
  Sender: FDA-Public Use
  Company Number: CA-TEVA-734167ACC

PATIENT
  Age: 57 Year
  Sex: Female

DRUGS (7)
  1. HUMALOG [Suspect]
     Active Substance: INSULIN LISPRO
     Indication: TYPE 2 DIABETES MELLITUS
     Dosage: 2 DOSAGE FORMS DAILY;
     Route: 058
  2. TWYNSTA [Suspect]
     Active Substance: AMLODIPINE BESYLATE\TELMISARTAN
     Route: 065
  3. LANTUS [Concomitant]
     Active Substance: INSULIN GLARGINE
  4. METFORMIN [Concomitant]
     Active Substance: METFORMIN HYDROCHLORIDE
  5. EZETIMIBE. [Suspect]
     Active Substance: EZETIMIBE
  6. FLUVASTATIN [Suspect]
     Active Substance: FLUVASTATIN SODIUM
     Route: 065
  7. INDAPAMIDE. [Suspect]
     Active Substance: INDAPAMIDE

REACTIONS (4)
  - Hypoaesthesia oral [Recovered/Resolved]
  - Movement disorder [Recovered/Resolved]
  - Head discomfort [Recovered/Resolved]
  - Paraesthesia [Recovered/Resolved]
